FAERS Safety Report 20189552 (Version 3)
Quarter: 2022Q1

REPORT INFORMATION
  Report Type: Report from Study
  Country: US (occurrence: US)
  Receive Date: 20211215
  Receipt Date: 20220126
  Transmission Date: 20220423
  Serious: Yes (Other)
  Sender: FDA-Public Use
  Company Number: US-TAKEDA-US202014736

PATIENT
  Sex: Female

DRUGS (1)
  1. HUMAN IMMUNOGLOBULIN G [Suspect]
     Active Substance: HUMAN IMMUNOGLOBULIN G
     Indication: Immunodeficiency common variable
     Dosage: 15 GRAM, 1/WEEK
     Route: 058

REACTIONS (5)
  - Ankylosing spondylitis [Unknown]
  - Deep vein thrombosis [Unknown]
  - Blood immunoglobulin A decreased [Unknown]
  - Staphylococcal infection [Unknown]
  - Illness [Not Recovered/Not Resolved]
